FAERS Safety Report 4294224-4 (Version None)
Quarter: 2004Q1

REPORT INFORMATION
  Report Type: 
  Country: None (occurrence: None)
  Receive Date: 20040211
  Receipt Date: 20040127
  Transmission Date: 20041129
  Serious: Yes (Hospitalization, Disabling, Other)
  Sender: FDA-Public Use
  Company Number: USA040157690

PATIENT
  Age: 48 Year
  Sex: Female

DRUGS (3)
  1. HUMULIN N [Suspect]
     Dates: start: 19640101
  2. HUMULIN R [Suspect]
  3. NOVOLIN NPH (INSULIN HUMAN INJECTION, ISOPHANE) [Concomitant]

REACTIONS (10)
  - ABNORMAL BEHAVIOUR [None]
  - APHONIA [None]
  - BLINDNESS [None]
  - BLOOD GLUCOSE INCREASED [None]
  - CEREBROVASCULAR ACCIDENT [None]
  - LEG AMPUTATION [None]
  - PHARMACEUTICAL PRODUCT COMPLAINT [None]
  - URINARY TRACT INFECTION [None]
  - VASCULAR BYPASS DYSFUNCTION [None]
  - VEIN DISORDER [None]
